FAERS Safety Report 17307486 (Version 1)
Quarter: 2020Q1

REPORT INFORMATION
  Report Type: Spontaneous
  Country: US (occurrence: US)
  Receive Date: 20200122
  Receipt Date: 20200122
  Transmission Date: 20200409
  Serious: Yes (Death)
  Sender: FDA-Public Use
  Company Number: None

PATIENT
  Age: 77 Year
  Sex: Female
  Weight: 72.45 kg

DRUGS (2)
  1. EVEROLIMUS. [Suspect]
     Active Substance: EVEROLIMUS
     Indication: BREAST CANCER METASTATIC
     Route: 048
     Dates: start: 20191005, end: 20191214
  2. EXEMESTANE. [Concomitant]
     Active Substance: EXEMESTANE
     Dates: start: 20191005, end: 20200103

REACTIONS (2)
  - Multiple organ dysfunction syndrome [None]
  - Pneumocystis jirovecii pneumonia [None]

NARRATIVE: CASE EVENT DATE: 20191206
